FAERS Safety Report 8391627-3 (Version None)
Quarter: 2012Q2

REPORT INFORMATION
  Report Type: 
  Country: None (occurrence: None)
  Receive Date: 20120529
  Receipt Date: 20120521
  Transmission Date: 20120825
  Serious: Yes (Hospitalization)
  Sender: FDA-Public Use
  Company Number: US-INCYTE CORPORATION-2012IN000705

PATIENT
  Sex: Female
  Weight: 63.3 kg

DRUGS (12)
  1. DETROL [Concomitant]
     Dosage: 2 MG, BID
  2. VITAMIN E [Concomitant]
     Dosage: UNK
  3. JAKAFI [Suspect]
     Indication: MYELOFIBROSIS
     Dosage: 15 MG, BID
     Route: 048
     Dates: start: 20120322, end: 20120414
  4. BENADRYL ALLERGY SYRUP [Concomitant]
     Dosage: 1 TSP AT BEDTIME
  5. JAKAFI [Suspect]
     Dosage: 15 MG, QD
     Route: 048
     Dates: start: 20120509
  6. VITAMIN B COMPLEX CAP [Concomitant]
     Dosage: UNK
  7. VICODIN HP [Concomitant]
     Dosage: 5 MG, PRN
  8. LOVAZA [Concomitant]
     Dosage: UNK
  9. THEOPHYLLINE [Concomitant]
     Dosage: UNK
  10. FERROUS SULFATE TAB [Concomitant]
     Dosage: 325 MG, QD
  11. CALCIUM [Concomitant]
     Dosage: UNK
  12. SECTRAL [Concomitant]
     Dosage: UNK

REACTIONS (6)
  - BLOOD PRESSURE INCREASED [None]
  - PLATELET COUNT DECREASED [None]
  - FATIGUE [None]
  - FEELING ABNORMAL [None]
  - CHEST DISCOMFORT [None]
  - DYSPNOEA [None]
